FAERS Safety Report 14629436 (Version 1)
Quarter: 2018Q1

REPORT INFORMATION
  Report Type: Spontaneous
  Country: US (occurrence: US)
  Receive Date: 20180312
  Receipt Date: 20180312
  Transmission Date: 20180509
  Serious: Yes (Other)
  Sender: FDA-Public Use
  Company Number: None

PATIENT
  Age: 89 Year
  Sex: Male
  Weight: 74 kg

DRUGS (3)
  1. CIPROFLOXACIN. [Suspect]
     Active Substance: CIPROFLOXACIN
     Indication: URINARY TRACT INFECTION
     Route: 048
     Dates: start: 20180302, end: 20180310
  2. LEVOTHYROXINE 25 MCG QAM (LONGTERM) [Concomitant]
  3. LIOTHYRONINE 10 MCG QAM AND 5 MCG QPM [Concomitant]

REACTIONS (5)
  - Pyrexia [None]
  - Petechiae [None]
  - Hypersensitivity vasculitis [None]
  - Rash [None]
  - Purpura [None]

NARRATIVE: CASE EVENT DATE: 20180310
